FAERS Safety Report 17537529 (Version 2)
Quarter: 2020Q2

REPORT INFORMATION
  Report Type: Report from Study
  Country: US (occurrence: US)
  Receive Date: 20200313
  Receipt Date: 20200417
  Transmission Date: 20200713
  Serious: Yes (Hospitalization)
  Sender: FDA-Public Use
  Company Number: US-BAYER-2020-042947

PATIENT
  Age: 63 Year
  Sex: Male
  Weight: 85.71 kg

DRUGS (1)
  1. ADEMPAS [Suspect]
     Active Substance: RIOCIGUAT
     Indication: PULMONARY HYPERTENSION
     Dosage: 2.5 MG, TID
     Route: 048
     Dates: start: 20190315

REACTIONS (7)
  - Fluid retention [Recovering/Resolving]
  - Anaemia [Not Recovered/Not Resolved]
  - Constipation [None]
  - Dyspnoea [None]
  - Constipation [Recovering/Resolving]
  - Oedema [None]
  - Faecaloma [Recovering/Resolving]

NARRATIVE: CASE EVENT DATE: 20200220
